FAERS Safety Report 25319499 (Version 1)
Quarter: 2025Q2

REPORT INFORMATION
  Report Type: Spontaneous
  Country: US (occurrence: None)
  Receive Date: 20250515
  Receipt Date: 20250515
  Transmission Date: 20250717
  Serious: Yes (Other)
  Sender: FDA-CTU
  Company Number: None

PATIENT
  Age: 33 Year
  Sex: Male
  Weight: 94.5 kg

DRUGS (1)
  1. LEXAPRO [Suspect]
     Active Substance: ESCITALOPRAM OXALATE
     Indication: Depression

REACTIONS (7)
  - Suicidal ideation [None]
  - Self-injurious ideation [None]
  - Electric shock sensation [None]
  - Dizziness [None]
  - Anger [None]
  - Abdominal pain upper [None]
  - Derealisation [None]

NARRATIVE: CASE EVENT DATE: 20240606
